FAERS Safety Report 24382098 (Version 1)
Quarter: 2024Q4

REPORT INFORMATION
  Report Type: Report from Study
  Country: CA (occurrence: CA)
  Receive Date: 20241001
  Receipt Date: 20241001
  Transmission Date: 20250114
  Serious: Yes (Other)
  Sender: DR REDDYS
  Company Number: CA-drreddys-CLI/CAN/23/0175362

PATIENT
  Age: 75 Year
  Sex: Female

DRUGS (5)
  1. ZOLEDRONIC [Suspect]
     Active Substance: ZOLEDRONIC ACID
     Indication: Osteoporosis
     Route: 065
     Dates: start: 20220621
  2. ZOLEDRONIC [Suspect]
     Active Substance: ZOLEDRONIC ACID
     Route: 065
     Dates: start: 20230717
  3. ZOLEDRONIC [Suspect]
     Active Substance: ZOLEDRONIC ACID
     Route: 065
     Dates: start: 20240717
  4. RENFLEXIS [Concomitant]
     Active Substance: INFLIXIMAB-ABDA
     Indication: Product used for unknown indication
     Route: 065
  5. CEPHALEXIN [Concomitant]
     Active Substance: CEPHALEXIN
     Indication: Product used for unknown indication
     Route: 065

REACTIONS (2)
  - Retinal tear [Recovered/Resolved]
  - Chloropsia [Recovered/Resolved]
